FAERS Safety Report 4645836-7 (Version None)
Quarter: 2005Q2

REPORT INFORMATION
  Report Type: 
  Country: None (occurrence: None)
  Receive Date: 20050422
  Receipt Date: 20050422
  Transmission Date: 20051028
  Serious: Yes (Hospitalization)
  Sender: FDA-Public Use
  Company Number: None

PATIENT
  Age: 69 Year
  Sex: Male
  Weight: 148.3262 kg

DRUGS (1)
  1. ENOXAPRIN  150 MG/ML [Suspect]
     Indication: MYOCARDIAL INFARCTION
     Dosage: 150 MG BID SUBCUTANEOUS
     Route: 058
     Dates: start: 20050314, end: 20050315

REACTIONS (4)
  - BLOOD PRESSURE FLUCTUATION [None]
  - CATHETER SITE RELATED REACTION [None]
  - POST PROCEDURAL HAEMATOMA [None]
  - VASCULAR PSEUDOANEURYSM [None]
